FAERS Safety Report 10108984 (Version 1)
Quarter: 2014Q2

REPORT INFORMATION
  Report Type: Spontaneous
  Country: US (occurrence: US)
  Receive Date: 20140425
  Receipt Date: 20140425
  Transmission Date: 20141212
  Serious: Yes (Hospitalization)
  Sender: FDA-Public Use
  Company Number: US-BAYER-2014-059628

PATIENT
  Age: 39 Year
  Sex: Female
  Weight: 78.46 kg

DRUGS (6)
  1. YAZ [Suspect]
  2. YASMIN [Suspect]
  3. ALEVE [Concomitant]
  4. HYDROCODONE [Concomitant]
     Indication: LIMB INJURY
  5. HYDROCODONE [Concomitant]
     Indication: FRACTURE
  6. ADVIL [Concomitant]

REACTIONS (2)
  - Pulmonary embolism [Recovered/Resolved]
  - Deep vein thrombosis [None]
